FAERS Safety Report 14562019 (Version 1)
Quarter: 2018Q1

REPORT INFORMATION
  Report Type: Report from Study
  Country: ES (occurrence: ES)
  Receive Date: 20180222
  Receipt Date: 20180222
  Transmission Date: 20180509
  Serious: Yes (Hospitalization)
  Sender: FDA-Public Use
  Company Number: ES-TEVA-2018-ES-858075

PATIENT
  Age: 33 Year
  Sex: Female

DRUGS (9)
  1. PARACETAMOL [Concomitant]
     Active Substance: ACETAMINOPHEN
     Dosage: 1GR/8H
     Dates: start: 20170411
  2. ESPIRONOLACTONA 150 [Concomitant]
     Dosage: 1 CP
     Route: 048
     Dates: start: 20170411
  3. METILPREDNISOLONA [Concomitant]
     Active Substance: METHYLPREDNISOLONE
     Dosage: 20 MG/8H
     Dates: start: 20170411
  4. AMOXICILLIN W/CLAVULANIC ACID [Suspect]
     Active Substance: AMOXICILLIN\CLAVULANIC ACID
     Dosage: 1GR/8H
     Route: 042
     Dates: start: 20170410, end: 20170414
  5. BISOPROLOL 5 [Concomitant]
     Active Substance: BISOPROLOL
     Dosage: 1-0-0
     Route: 048
     Dates: start: 20170410
  6. DIGOXINA [Concomitant]
     Active Substance: DIGOXIN
     Dosage: 0.125 MG
     Route: 048
     Dates: start: 20170411
  7. CLARITHROMYCIN. [Suspect]
     Active Substance: CLARITHROMYCIN
     Dosage: 500 MG
     Route: 048
     Dates: start: 20170411, end: 20170414
  8. CLORTALIDONA 12.5 [Concomitant]
     Dosage: 1-0-0
     Route: 048
     Dates: start: 20170410
  9. ENOXAPARINA [Concomitant]
     Active Substance: ENOXAPARIN
     Dosage: 40 MG
     Dates: start: 20170411

REACTIONS (1)
  - Hepatitis acute [Recovered/Resolved]

NARRATIVE: CASE EVENT DATE: 20170414
